FAERS Safety Report 26150899 (Version 1)
Quarter: 2025Q4

REPORT INFORMATION
  Report Type: Spontaneous
  Country: EU (occurrence: EU)
  Receive Date: 20251212
  Receipt Date: 20251212
  Transmission Date: 20260118
  Serious: Yes (Other)
  Sender: PFIZER
  Company Number: EU-PFIZER INC-PV202500145016

PATIENT
  Age: 47 Year
  Sex: Female

DRUGS (1)
  1. DEPO-PROVERA [Suspect]
     Active Substance: MEDROXYPROGESTERONE ACETATE
     Indication: Contraception
     Dosage: UNK

REACTIONS (7)
  - Neoplasm [Unknown]
  - Malignant neoplasm progression [Unknown]
  - Arterial thrombosis [Unknown]
  - Fatigue [Unknown]
  - Hypoacusis [Unknown]
  - Tinnitus [Unknown]
  - Amnesia [Unknown]
